FAERS Safety Report 8663693 (Version 3)
Quarter: 2013Q4

REPORT INFORMATION
  Report Type: Report from Study
  Country: US (occurrence: US)
  Receive Date: 20120713
  Receipt Date: 20131126
  Transmission Date: 20140711
  Serious: Yes (Other)
  Sender: FDA-Public Use
  Company Number: PHEH2012US013599

PATIENT
  Sex: Female
  Weight: 65.76 kg

DRUGS (18)
  1. GILENYA [Suspect]
     Indication: MULTIPLE SCLEROSIS
     Dosage: 0.5 MG, QD
     Route: 048
     Dates: start: 201110, end: 2012
  2. NUVIGIL [Concomitant]
     Dosage: 250 MG, UNK
     Dates: start: 20110623
  3. LITHIUM [Concomitant]
     Indication: BIPOLAR DISORDER
  4. XANAX [Concomitant]
     Indication: BIPOLAR DISORDER
     Dosage: 1 MG, QD
  5. LIPITOR [Concomitant]
     Indication: BLOOD CHOLESTEROL
  6. ASPIRIN ENTERIC COATED K.P. [Concomitant]
     Dosage: 325 MG, UNK
  7. TRIAZOLAM [Concomitant]
     Indication: SLEEP DISORDER
     Dosage: 0.25 MG, UNK
  8. LOMOTIL [Concomitant]
  9. LOTRONEX [Concomitant]
  10. CITALOPRAM [Concomitant]
     Dosage: 20 MG, QD
  11. AMPHETAMINE SALTS [Concomitant]
     Dosage: 10 MG, UNK
  12. DICYCLOMINE [Concomitant]
     Dosage: 10 MG, UNK
  13. ADDERALL [Concomitant]
     Dosage: 10 MG, BID
  14. METOCLOPRAMIDE [Concomitant]
     Dosage: 10 MG, UNK
  15. ATORVASTATIN [Concomitant]
     Dosage: 20 MG, UNK
  16. ALPRAZOLAM [Concomitant]
  17. ZOLPIDEM TARTRATE [Concomitant]
  18. CYMBALTA [Concomitant]

REACTIONS (2)
  - Blood pressure decreased [Not Recovered/Not Resolved]
  - Loss of consciousness [Not Recovered/Not Resolved]
